FAERS Safety Report 6890047-8 (Version None)
Quarter: 2010Q3

REPORT INFORMATION
  Report Type: 
  Country: None (occurrence: None)
  Receive Date: 20100730
  Receipt Date: 20080804
  Transmission Date: 20110219
  Serious: No
  Sender: FDA-Public Use
  Company Number: US-PFIZER INC-2008061809

PATIENT
  Sex: Male
  Weight: 75 kg

DRUGS (11)
  1. LIPITOR [Suspect]
     Indication: BLOOD CHOLESTEROL INCREASED
     Dates: start: 19970901, end: 20080701
  2. CRESTOR [Suspect]
     Indication: BLOOD CHOLESTEROL INCREASED
     Dates: start: 20080701
  3. PLAVIX [Concomitant]
  4. LISINOPRIL [Concomitant]
  5. AEROBID [Concomitant]
  6. ATIVAN [Concomitant]
  7. FINASTERIDE [Concomitant]
  8. SYNTHROID [Concomitant]
  9. TOPAMAX [Concomitant]
  10. ZETIA [Concomitant]
  11. ALL OTHER THERAPEUTIC PRODUCTS [Concomitant]

REACTIONS (3)
  - DRUG INEFFECTIVE [None]
  - GROIN PAIN [None]
  - MYALGIA [None]
